FAERS Safety Report 11720922 (Version 1)
Quarter: 2015Q4

REPORT INFORMATION
  Report Type: Spontaneous
  Country: US (occurrence: US)
  Receive Date: 20151110
  Receipt Date: 20151110
  Transmission Date: 20160304
  Serious: No
  Sender: FDA-Public Use
  Company Number: US-SA-2015SA142152

PATIENT
  Age: 68 Year
  Sex: Male

DRUGS (4)
  1. PRALUENT [Suspect]
     Active Substance: ALIROCUMAB
     Route: 065
     Dates: start: 20150817
  2. PRALUENT [Suspect]
     Active Substance: ALIROCUMAB
     Route: 065
     Dates: start: 20150831
  3. ALIROCUMAB PREFILLED PEN [Concomitant]
     Dates: start: 20150817
  4. ALIROCUMAB PREFILLED PEN [Concomitant]
     Dates: start: 20150831

REACTIONS (12)
  - Dehydration [Unknown]
  - Chills [Unknown]
  - Oropharyngeal pain [Not Recovered/Not Resolved]
  - Sinusitis [Not Recovered/Not Resolved]
  - Pyrexia [Unknown]
  - Arthralgia [Unknown]
  - Headache [Not Recovered/Not Resolved]
  - Rash maculo-papular [Unknown]
  - Adverse drug reaction [Unknown]
  - Erythema [Unknown]
  - Tremor [Unknown]
  - Oral herpes [Unknown]

NARRATIVE: CASE EVENT DATE: 20150820
